FAERS Safety Report 8303467-1 (Version None)
Quarter: 2012Q2

REPORT INFORMATION
  Report Type: 
  Country: None (occurrence: None)
  Receive Date: 20120423
  Receipt Date: 20120417
  Transmission Date: 20120825
  Serious: No
  Sender: FDA-Public Use
  Company Number: US-PFIZER INC-2012095532

PATIENT
  Sex: Male

DRUGS (2)
  1. TOVIAZ [Suspect]
     Indication: POLLAKIURIA
     Dosage: 4 MG, 1X/DAY
     Route: 048
     Dates: start: 20120412
  2. COUMADIN [Concomitant]
     Dosage: UNK

REACTIONS (3)
  - SENSORY LOSS [None]
  - POLLAKIURIA [None]
  - URINARY INCONTINENCE [None]
